FAERS Safety Report 25515345 (Version 1)
Quarter: 2025Q3

REPORT INFORMATION
  Report Type: Report from Study
  Country: US (occurrence: US)
  Receive Date: 20250704
  Receipt Date: 20250704
  Transmission Date: 20251021
  Serious: Yes (Other)
  Sender: NOVARTIS
  Company Number: US-002147023-NVSC2025US105421

PATIENT
  Sex: Male

DRUGS (1)
  1. PLUVICTO [Suspect]
     Active Substance: LUTETIUM LU-177 VIPIVOTIDE TETRAXETAN
     Indication: Prostate cancer
     Route: 065
     Dates: start: 202505

REACTIONS (5)
  - Bone cancer [Recovering/Resolving]
  - Spinal pain [Recovering/Resolving]
  - Illness [Recovering/Resolving]
  - Nausea [Unknown]
  - Fatigue [Unknown]
